FAERS Safety Report 5084865-9 (Version None)
Quarter: 2006Q3

REPORT INFORMATION
  Report Type: 
  Country: None (occurrence: None)
  Receive Date: 20060815
  Receipt Date: 20060731
  Transmission Date: 20061208
  Serious: Yes (Death, Hospitalization)
  Sender: FDA-Public Use
  Company Number: PAR_0724_2006

PATIENT
  Age: 91 Year
  Sex: Female

DRUGS (4)
  1. IBUPROFEN [Suspect]
     Indication: OSTEOARTHRITIS
     Dosage: DF
  2. BUMETANIDE [Suspect]
     Indication: HYPERTENSION
     Dosage: DF
  3. DICLOFENAC [Suspect]
     Indication: OSTEOARTHRITIS
     Dosage: DF
  4. SPIRONOLACTONE [Suspect]
     Indication: HYPERTENSION
     Dosage: DF

REACTIONS (2)
  - BLOOD POTASSIUM INCREASED [None]
  - RENAL FAILURE [None]
